FAERS Safety Report 9860153 (Version 1)
Quarter: 2014Q1

REPORT INFORMATION
  Report Type: Spontaneous
  Country: LB (occurrence: LB)
  Receive Date: 20140201
  Receipt Date: 20140201
  Transmission Date: 20141002
  Serious: Yes (Other)
  Sender: FDA-Public Use
  Company Number: LB-ACCORD-021612

PATIENT
  Age: 72 Year
  Sex: Female

DRUGS (5)
  1. RANITIDINE [Concomitant]
     Dosage: PRIOR TO EACH WEEKLY SESSION
     Route: 042
  2. PACLITAXEL/PACLITAXEL LIPOSOME [Suspect]
     Indication: PRODUCT USED FOR UNKNOWN INDICATION
     Dosage: 80 MG/M2 INTRAVENOUS (IV) INFUSION OVER 1 H
     Route: 042
  3. GRANISETRON [Concomitant]
     Dosage: PRIOR TO EACH WEEKLY SESSION
     Route: 042
  4. DIPHENHYDRAMINE [Concomitant]
     Dosage: PRIOR TO EACH WEEKLY SESSION
     Route: 042
  5. DEXAMETHASONE [Concomitant]
     Dosage: PRIOR TO EACH WEEKLY SESSION
     Route: 042

REACTIONS (1)
  - Palmar-plantar erythrodysaesthesia syndrome [Recovering/Resolving]
